FAERS Safety Report 25162411 (Version 1)
Quarter: 2025Q2

REPORT INFORMATION
  Report Type: Spontaneous
  Country: US (occurrence: None)
  Receive Date: 20250404
  Receipt Date: 20250404
  Transmission Date: 20250716
  Serious: Yes (Life-Threatening, Hospitalization)
  Sender: FDA-CTU
  Company Number: None

PATIENT

DRUGS (2)
  1. NOVOLIN NOS [Suspect]
     Active Substance: INSULIN HUMAN
  2. HUMULIN NOS [Suspect]
     Active Substance: INSULIN HUMAN

REACTIONS (1)
  - Incorrect dose administered [None]
